FAERS Safety Report 9999037 (Version 1)
Quarter: 2014Q1

REPORT INFORMATION
  Report Type: Spontaneous
  Country: US (occurrence: None)
  Receive Date: 20140311
  Receipt Date: 20140311
  Transmission Date: 20141002
  Serious: Yes (Other)
  Sender: FDA-Public Use
  Company Number: None

PATIENT
  Age: 38 Week
  Sex: Female
  Weight: 48.54 kg

DRUGS (1)
  1. QVAR [Suspect]
     Indication: ASTHMA
     Dosage: 1 PUFF  TWICE DAILY INHALATION
     Route: 055
     Dates: start: 20140121, end: 20140212

REACTIONS (6)
  - Malaise [None]
  - Feeling abnormal [None]
  - Tremor [None]
  - Weight decreased [None]
  - Fear [None]
  - Panic attack [None]
